FAERS Safety Report 18805271 (Version 2)
Quarter: 2021Q3

REPORT INFORMATION
  Report Type: Spontaneous
  Country: CA (occurrence: CA)
  Receive Date: 20210129
  Receipt Date: 20210730
  Transmission Date: 20211014
  Serious: Yes (Other)
  Sender: FDA-Public Use
  Company Number: CA-AUROBINDO-AUR-APL-2021-003376

PATIENT
  Age: 67 Year
  Sex: Female

DRUGS (2)
  1. MEPOLIZUMAB [Suspect]
     Active Substance: MEPOLIZUMAB
     Indication: ASTHMA
     Dosage: 100 MILLIGRAM
     Route: 042
  2. ROSUVASTATIN TABLET [Suspect]
     Active Substance: ROSUVASTATIN
     Indication: BLOOD CHOLESTEROL
     Dosage: 40 MILLIGRAM
     Route: 048

REACTIONS (6)
  - Arteriosclerosis coronary artery [Unknown]
  - Asthma [Unknown]
  - Dyslipidaemia [Unknown]
  - Neuropathy peripheral [Unknown]
  - Restless legs syndrome [Unknown]
  - Myalgia [Unknown]
